FAERS Safety Report 7325692-9 (Version None)
Quarter: 2011Q1

REPORT INFORMATION
  Report Type: 
  Country: None (occurrence: None)
  Receive Date: 20110216
  Receipt Date: 20110202
  Transmission Date: 20110831
  Serious: Yes (Hospitalization)
  Sender: FDA-Public Use
  Company Number: 2011SP005275

PATIENT
  Age: 72 Year
  Sex: Female

DRUGS (4)
  1. DIPROSPAN (BETAMETHASONE SODIUM PHOSPHATE/DIPROPIONATE) (BETAMETHASONE [Suspect]
     Indication: PRODUCT USED FOR UNKNOWN INDICATION
     Dosage: IA
     Route: 014
  2. LIDOCAIN (LIDOCAINE HYDROCHLORIDE /00033402/) [Suspect]
     Indication: PRODUCT USED FOR UNKNOWN INDICATION
     Dosage: ;IA
     Route: 014
  3. CONCOR COR [Concomitant]
  4. NOLIPREL [Concomitant]

REACTIONS (2)
  - CONVULSION [None]
  - DIZZINESS [None]
